FAERS Safety Report 21178267 (Version 2)
Quarter: 2022Q3

REPORT INFORMATION
  Report Type: Spontaneous
  Country: PL (occurrence: PL)
  Receive Date: 20220805
  Receipt Date: 20220824
  Transmission Date: 20221027
  Serious: No
  Sender: FDA-Public Use
  Company Number: PL-TEVA-2022-PL-2052735

PATIENT
  Age: 74 Year
  Sex: Female

DRUGS (4)
  1. PREGABALIN [Suspect]
     Active Substance: PREGABALIN
     Indication: Neuropathy peripheral
     Dosage: 50 MILLIGRAM DAILY; OVERNIGHT
  2. PREGABALIN [Suspect]
     Active Substance: PREGABALIN
     Dosage: TITRATE TO 450 MG/24 H IN 3 DIVIDED DOSES
  3. OXYCODONE [Suspect]
     Active Substance: OXYCODONE
     Indication: Neuropathy peripheral
     Dosage: 5 MILLIGRAM CONTROLLED-RELEASE , EVERY 12 HR WITH DOSE UP-TITRATION
  4. FLUDARABINE [Suspect]
     Active Substance: FLUDARABINE PHOSPHATE
     Indication: Marginal zone lymphoma

REACTIONS (1)
  - Therapeutic product effect incomplete [Unknown]
